FAERS Safety Report 7964476-5 (Version None)
Quarter: 2011Q4

REPORT INFORMATION
  Report Type: 
  Country: None (occurrence: None)
  Receive Date: 20111208
  Receipt Date: 20111206
  Transmission Date: 20120403
  Serious: No
  Sender: FDA-Public Use
  Company Number: US-TEVA-312427USA

PATIENT
  Sex: Male

DRUGS (2)
  1. BECLOMETHASONE DIPROPIONATE [Concomitant]
     Indication: ASTHMA
  2. PROAIR HFA [Suspect]
     Indication: ASTHMA
     Dosage: Q4-6 HR
     Route: 055
     Dates: start: 20060101

REACTIONS (1)
  - DRUG EFFECT DECREASED [None]
